FAERS Safety Report 9705799 (Version 1)
Quarter: 2013Q4

REPORT INFORMATION
  Report Type: Spontaneous
  Country: US (occurrence: US)
  Receive Date: 20131122
  Receipt Date: 20131122
  Transmission Date: 20140711
  Serious: No
  Sender: FDA-Public Use
  Company Number: US-GILEAD-2008-0018039

PATIENT
  Sex: Female
  Weight: 43.91 kg

DRUGS (14)
  1. LETAIRIS [Suspect]
     Indication: PULMONARY ARTERIAL HYPERTENSION
     Route: 048
     Dates: start: 20080814
  2. CENTRUM SILVER [Concomitant]
     Route: 048
  3. TIMOPTIC [Concomitant]
     Dosage: AS DIRECTED
     Route: 047
  4. LASIX [Concomitant]
     Route: 048
  5. COUMADIN [Concomitant]
     Route: 048
  6. AZOPT [Concomitant]
     Route: 047
  7. OSCAL + D [Concomitant]
     Route: 048
  8. DIGOXIN [Concomitant]
     Route: 048
  9. ASACOL [Concomitant]
     Route: 048
  10. ISOSORBIDE [Concomitant]
     Route: 048
  11. POTASSIUM [Concomitant]
     Route: 048
  12. CARTIA XT [Concomitant]
     Route: 048
  13. LEXAPRO [Concomitant]
     Route: 048
  14. VITAMIN E [Concomitant]
     Route: 048

REACTIONS (1)
  - Local swelling [Unknown]
